FAERS Safety Report 5509167-5 (Version None)
Quarter: 2007Q4

REPORT INFORMATION
  Report Type: 
  Country: None (occurrence: None)
  Receive Date: 20071031
  Receipt Date: 20070701
  Transmission Date: 20080405
  Serious: No
  Sender: FDA-Public Use
  Company Number: 2007PV033082

PATIENT
  Age: 58 Year
  Sex: Female

DRUGS (11)
  1. SYMLIN [Suspect]
     Indication: TYPE 2 DIABETES MELLITUS
     Dosage: 150  MCG; TID; SC; 120 MCG; TID; SC; 10 MCG; TID; SC
     Route: 058
     Dates: start: 20070612, end: 20070601
  2. SYMLIN [Suspect]
     Indication: TYPE 2 DIABETES MELLITUS
     Dosage: 150  MCG; TID; SC; 120 MCG; TID; SC; 10 MCG; TID; SC
     Route: 058
     Dates: start: 20070619, end: 20070625
  3. SYMLIN [Suspect]
     Indication: TYPE 2 DIABETES MELLITUS
     Dosage: 150  MCG; TID; SC; 120 MCG; TID; SC; 10 MCG; TID; SC
     Route: 058
     Dates: start: 20070626
  4. PRANDIN [Concomitant]
  5. PROTONIX [Concomitant]
  6. ENALAPRIL [Concomitant]
  7. LASIX [Concomitant]
  8. ALDATAZIDE [Concomitant]
  9. EYE DROPS [Concomitant]
  10. LANTUS [Concomitant]
  11. HUMALOG [Concomitant]

REACTIONS (3)
  - BLOOD GLUCOSE INCREASED [None]
  - MUSCLE SPASMS [None]
  - OEDEMA PERIPHERAL [None]
